FAERS Safety Report 8989202 (Version 3)
Quarter: 2013Q2

REPORT INFORMATION
  Report Type: Report from Study
  Country: CA (occurrence: CA)
  Receive Date: 20121228
  Receipt Date: 20130613
  Transmission Date: 20140414
  Serious: Yes (Death, Other)
  Sender: FDA-Public Use
  Company Number: PHHY2012CA120515

PATIENT
  Sex: Male

DRUGS (3)
  1. CLOZARIL [Suspect]
     Indication: SCHIZOPHRENIA
     Dosage: UNK
     Dates: start: 20101108
  2. CLOZARIL [Suspect]
     Dosage: 32.5 MG,(12.5 MG, QAM AND 25MG QHS)
  3. ATIVAN [Concomitant]
     Dosage: 5 Q1H , PRN
     Route: 058

REACTIONS (2)
  - Lung disorder [Fatal]
  - Chronic obstructive pulmonary disease [Unknown]
